FAERS Safety Report 4756006-6 (Version None)
Quarter: 2005Q3

REPORT INFORMATION
  Report Type: 
  Country: None (occurrence: None)
  Receive Date: 20050825
  Receipt Date: 20050518
  Transmission Date: 20060218
  Serious: Yes (Hospitalization)
  Sender: FDA-Public Use
  Company Number: WAES 0505USA02238

PATIENT
  Sex: Male

DRUGS (1)
  1. VYTORIN [Suspect]
     Dosage: PO
     Route: 048
     Dates: start: 20050401

REACTIONS (2)
  - BLOOD CREATINE PHOSPHOKINASE INCREASED [None]
  - PAIN IN EXTREMITY [None]
